FAERS Safety Report 19420854 (Version 1)
Quarter: 2021Q2

REPORT INFORMATION
  Report Type: Spontaneous
  Country: GB (occurrence: GB)
  Receive Date: 20210615
  Receipt Date: 20210615
  Transmission Date: 20210717
  Serious: Yes (Other)
  Sender: FDA-Public Use
  Company Number: GB-MYLANLABS-2021M1034375

PATIENT
  Age: 47 Year
  Sex: Male
  Weight: 80 kg

DRUGS (4)
  1. LORATADINE. [Concomitant]
     Active Substance: LORATADINE
     Dosage: UNK
  2. OLANZAPINE. [Suspect]
     Active Substance: OLANZAPINE
     Dosage: 2.5 MILLIGRAM, QD
     Route: 048
     Dates: start: 20210416, end: 20210520
  3. BACLOFEN. [Concomitant]
     Active Substance: BACLOFEN
     Dosage: UNK
  4. OLANZAPINE. [Suspect]
     Active Substance: OLANZAPINE
     Indication: BIPOLAR II DISORDER
     Dosage: 5 MILLIGRAM
     Route: 048

REACTIONS (1)
  - Vision blurred [Recovering/Resolving]

NARRATIVE: CASE EVENT DATE: 20210416
